FAERS Safety Report 10490502 (Version 2)
Quarter: 2014Q4

REPORT INFORMATION
  Report Type: Spontaneous
  Country: GB (occurrence: GB)
  Receive Date: 20141002
  Receipt Date: 20141104
  Transmission Date: 20150528
  Serious: Yes (Hospitalization)
  Sender: FDA-Public Use
  Company Number: GB-PFIZER INC-2014267397

PATIENT
  Age: 67 Year
  Sex: Female
  Weight: 95 kg

DRUGS (18)
  1. DIGOXIN. [Suspect]
     Active Substance: DIGOXIN
     Dosage: 125 UG, 1X/DAY
  2. DIAZEPAM. [Concomitant]
     Active Substance: DIAZEPAM
     Dosage: 2MG AS NECESSARY (PRN) MAXIMAL TWICE DAILY
  3. GLICLAZIDE [Concomitant]
     Active Substance: GLICLAZIDE
     Dosage: 80 MG, 2X/DAY
  4. CARBOCISTEINE [Concomitant]
     Active Substance: CARBOCYSTEINE
     Dosage: 750 MG, 3X/DAY
     Route: 048
  5. METFORMIN [Concomitant]
     Active Substance: METFORMIN HYDROCHLORIDE
     Indication: DIABETES MELLITUS
     Dosage: 2 G, 1X/DAY
  6. LIRAGLUTIDE (NN2211) [Concomitant]
     Active Substance: LIRAGLUTIDE
     Dosage: UNK
     Route: 030
  7. AZITHROMYCIN [Suspect]
     Active Substance: AZITHROMYCIN ANHYDROUS
     Indication: CHRONIC OBSTRUCTIVE PULMONARY DISEASE
     Dosage: 250 MG, 1X/DAY
     Route: 048
     Dates: start: 20140819, end: 20140904
  8. DIGOXIN. [Suspect]
     Active Substance: DIGOXIN
     Indication: ATRIAL FIBRILLATION
     Dosage: 250 UG, 1X/DAY
     Route: 048
     Dates: start: 2004, end: 20140916
  9. METOCLOPRAMIDE. [Concomitant]
     Active Substance: METOCLOPRAMIDE
     Dosage: 10 MG, 3X/DAY
  10. VENTOLIN [Concomitant]
     Active Substance: ALBUTEROL SULFATE
     Dosage: 2 DF, UNK
     Route: 055
  11. AMLODIPINE [Concomitant]
     Active Substance: AMLODIPINE BESYLATE
     Dosage: 5 MG, 1X/DAY
  12. SERETIDE [Concomitant]
     Active Substance: FLUTICASONE FUROATE\SALMETEROL XINAFOATE
     Dosage: 2 DF, 2X/DAY
     Route: 055
  13. WARFARIN [Concomitant]
     Active Substance: WARFARIN
     Dosage: UNK
  14. COCODAMOL [Concomitant]
     Active Substance: ACETAMINOPHEN\CODEINE PHOSPHATE
     Dosage: 30/500 MG ONE OR TWO FOUR TIMES DAILY
  15. SPIRONOLACTONE. [Concomitant]
     Active Substance: SPIRONOLACTONE
     Dosage: 25 MG, 1X/DAY
  16. LANSOPRAZOLE. [Concomitant]
     Active Substance: LANSOPRAZOLE
     Dosage: 30 MG, 1X/DAY
  17. TIOTROPIUM BROMIDE [Concomitant]
     Active Substance: TIOTROPIUM BROMIDE
     Dosage: 18 UG, 1X/DAY
  18. FUROSEMIDE. [Concomitant]
     Active Substance: FUROSEMIDE
     Dosage: INCREASED BY CONSULTANT TO 80 MG BD FOR ONE MONTH THEN REDUCED BACK TO 120 MG DAILY AS BEFORE

REACTIONS (10)
  - Renal injury [Unknown]
  - Lethargy [Unknown]
  - Toxicity to various agents [Unknown]
  - Nausea [Unknown]
  - Abdominal pain [Unknown]
  - Hypotension [Unknown]
  - Bradycardia [Unknown]
  - Vomiting [Unknown]
  - International normalised ratio increased [Unknown]
  - Dehydration [Unknown]

NARRATIVE: CASE EVENT DATE: 20140904
